FAERS Safety Report 9380218 (Version 1)
Quarter: 2013Q2

REPORT INFORMATION
  Report Type: Spontaneous
  Country: CA (occurrence: None)
  Receive Date: 20130628
  Receipt Date: 20130628
  Transmission Date: 20140414
  Serious: Yes (Hospitalization)
  Sender: FDA-Public Use
  Company Number: 2013AP006159

PATIENT
  Age: 27 Year
  Sex: Female

DRUGS (4)
  1. LORAZEPAM (LORAZEPAM) [Suspect]
     Indication: GRAND MAL CONVULSION
  2. PROPOFOL (PROPOFOL) [Concomitant]
  3. ACICLOVIR (ACICLOVIR) [Concomitant]
  4. CEFTRIAXONE (CEFTRIAXONE) [Concomitant]

REACTIONS (11)
  - Encephalitis [None]
  - Status epilepticus [None]
  - Pleocytosis [None]
  - Convulsion [None]
  - Anti-SS-A antibody positive [None]
  - Antinuclear antibody positive [None]
  - Anti-SS-B antibody positive [None]
  - CSF oligoclonal band present [None]
  - Drug hypersensitivity [None]
  - Rash [None]
  - Partial seizures [None]
